FAERS Safety Report 16703852 (Version 1)
Quarter: 2019Q3

REPORT INFORMATION
  Report Type: Spontaneous
  Country: UA (occurrence: UA)
  Receive Date: 20190814
  Receipt Date: 20190814
  Transmission Date: 20191004
  Serious: Yes (Hospitalization)
  Sender: FDA-Public Use
  Company Number: UA-ARBOR PHARMACEUTICALS, LLC-UA-2019ARB001232

PATIENT
  Age: 32 Year
  Sex: Male

DRUGS (1)
  1. AMPHETAMINE SULFATE. [Suspect]
     Active Substance: AMPHETAMINE SULFATE
     Indication: PRODUCT USED FOR UNKNOWN INDICATION
     Dosage: UNK
     Route: 048

REACTIONS (4)
  - Left ventricular dysfunction [Not Recovered/Not Resolved]
  - Toxicity to various agents [Unknown]
  - Embolism [Recovering/Resolving]
  - Cardiomyopathy [Recovering/Resolving]
